FAERS Safety Report 20236366 (Version 1)
Quarter: 2021Q4

REPORT INFORMATION
  Report Type: Report from Study
  Country: US (occurrence: US)
  Receive Date: 20211228
  Receipt Date: 20211228
  Transmission Date: 20220304
  Serious: Yes (Other)
  Sender: FDA-Public Use
  Company Number: US-NOVARTISPH-NVSC2021US294275

PATIENT
  Sex: Female

DRUGS (4)
  1. PIQRAY [Suspect]
     Active Substance: ALPELISIB
     Indication: Metastasis
     Dosage: UNK (50% OF PIQRAY)
     Route: 065
     Dates: start: 202106
  2. FULVESTRANT [Suspect]
     Active Substance: FULVESTRANT
     Indication: Metastasis
     Dosage: UNK
     Route: 065
     Dates: start: 202104, end: 202108
  3. LUPRON [Suspect]
     Active Substance: LEUPROLIDE ACETATE
     Indication: Product used for unknown indication
     Dosage: UNK, Q4W
     Route: 065
  4. XGEVA [Suspect]
     Active Substance: DENOSUMAB
     Indication: Product used for unknown indication
     Dosage: UNK, Q4W
     Route: 065

REACTIONS (6)
  - Vision blurred [Unknown]
  - Adverse drug reaction [Unknown]
  - Headache [Unknown]
  - Vomiting [Unknown]
  - Hyperglycaemia [Unknown]
  - Rash [Unknown]

NARRATIVE: CASE EVENT DATE: 20210101
